FAERS Safety Report 9407913 (Version 1)
Quarter: 2013Q3

REPORT INFORMATION
  Report Type: Spontaneous
  Country: US (occurrence: None)
  Receive Date: 20130717
  Receipt Date: 20130717
  Transmission Date: 20140515
  Serious: Yes (Hospitalization)
  Sender: FDA-Public Use
  Company Number: None

PATIENT
  Age: 59 Year
  Sex: Female
  Weight: 59.8 kg

DRUGS (6)
  1. ANASTROZOLE [Suspect]
     Indication: BREAST CANCER
     Route: 048
     Dates: start: 20130412
  2. PLACEBO [Suspect]
     Indication: BREAST CANCER
  3. LEVOTHYROXINE [Concomitant]
  4. LISINOPRIL [Concomitant]
  5. METFORMIN [Concomitant]
  6. PRAVASTATIN [Concomitant]

REACTIONS (10)
  - Hyperglycaemia [None]
  - Dehydration [None]
  - Blood creatinine increased [None]
  - Rash pruritic [None]
  - Rash macular [None]
  - Aspartate aminotransferase increased [None]
  - Alanine aminotransferase increased [None]
  - Blood alkaline phosphatase increased [None]
  - Diabetes mellitus inadequate control [None]
  - Anaemia [None]
